FAERS Safety Report 4491446-4 (Version None)
Quarter: 2004Q3

REPORT INFORMATION
  Report Type: 
  Country: None (occurrence: None)
  Receive Date: 20040921
  Receipt Date: 20040617
  Transmission Date: 20050211
  Serious: Yes (Death, Hospitalization)
  Sender: FDA-Public Use
  Company Number: 155-20785-04060476

PATIENT
  Age: 56 Year
  Sex: Male

DRUGS (2)
  1. THALOMID [Suspect]
     Indication: MULTIPLE MYELOMA
     Dosage: 400 MG, QD, ORAL
     Route: 048
     Dates: end: 20040506
  2. INTERFERON ALPHA 2B (INTERFERON ALFA-2B) [Suspect]
     Indication: MULTIPLE MYELOMA

REACTIONS (5)
  - DEATH [None]
  - DISEASE PROGRESSION [None]
  - PNEUMONIA [None]
  - SEPSIS [None]
  - URINARY TRACT INFECTION BACTERIAL [None]
